FAERS Safety Report 8735314 (Version 4)
Quarter: 2013Q1

REPORT INFORMATION
  Report Type: Report from Study
  Country: JP (occurrence: JP)
  Receive Date: 20120822
  Receipt Date: 20130129
  Transmission Date: 20140127
  Serious: Yes (Hospitalization, Other)
  Sender: FDA-Public Use
  Company Number: JP-009507513-1208JPN005263

PATIENT
  Age: 61 Year
  Sex: Male
  Weight: 58 kg

DRUGS (14)
  1. PEGINTRON [Suspect]
     Indication: CHRONIC HEPATITIS C
     Dosage: 1.027 MICROGRAM PER KILOGRAM, QW
     Route: 058
     Dates: start: 20120409, end: 20120806
  2. REBETOL [Suspect]
     Indication: CHRONIC HEPATITIS C
     Dosage: 400 MG, QD
     Route: 048
     Dates: start: 20120409, end: 20120415
  3. REBETOL [Suspect]
     Dosage: 600 MG, QD
     Route: 048
     Dates: start: 20120416, end: 20120610
  4. REBETOL [Suspect]
     Dosage: 200 MG, QD
     Route: 048
     Dates: start: 20120611, end: 20120617
  5. REBETOL [Suspect]
     Dosage: 400 MG, QD
     Route: 048
     Dates: start: 20120618, end: 20120716
  6. REBETOL [Suspect]
     Dosage: 200 MG, QD
     Route: 048
     Dates: start: 20120717, end: 20120722
  7. REBETOL [Suspect]
     Dosage: 200 MG, QD
     Dates: start: 20120731, end: 20120812
  8. TELAVIC [Suspect]
     Indication: CHRONIC HEPATITIS C
     Dosage: 1500 MG, QD
     Route: 048
     Dates: start: 20120409, end: 20120716
  9. VOLTAREN [Concomitant]
     Indication: PYREXIA
     Dosage: 50 MG, QD
     Route: 054
     Dates: start: 20120409
  10. VOLTAREN SR [Concomitant]
     Indication: PYREXIA
     Dosage: 37.5 MG, QD
     Route: 048
     Dates: start: 20120426
  11. VOLTAREN SR [Concomitant]
     Indication: PROPHYLAXIS
  12. ANTEBATE [Concomitant]
     Indication: RASH
     Dosage: PROPER QUANTITY/DAY
     Route: 061
     Dates: start: 20120415
  13. FEBURIC [Concomitant]
     Indication: PROPHYLAXIS
     Dosage: 20 MG, QD, FORMULATION: POR
     Route: 048
     Dates: start: 20120703, end: 20120707
  14. VOLTAREN [Concomitant]
     Indication: PROPHYLAXIS
     Dosage: 25 MG/DAY, PRN
     Route: 054

REACTIONS (6)
  - Gastric cancer [Recovered/Resolved]
  - Hyperuricaemia [Not Recovered/Not Resolved]
  - Renal impairment [Recovered/Resolved]
  - Anaemia [Not Recovered/Not Resolved]
  - Pyrexia [None]
  - Rash [None]
